FAERS Safety Report 10259671 (Version 1)
Quarter: 2014Q2

REPORT INFORMATION
  Report Type: Spontaneous
  Country: US (occurrence: US)
  Receive Date: 20140625
  Receipt Date: 20140625
  Transmission Date: 20141212
  Serious: No
  Sender: FDA-Public Use
  Company Number: US-ASTELLAS-2014US003865

PATIENT
  Sex: Male

DRUGS (2)
  1. VESICARE [Suspect]
     Indication: POLLAKIURIA
     Route: 065
     Dates: start: 20140404
  2. VESICARE [Suspect]
     Route: 065
     Dates: start: 20140325, end: 20140403

REACTIONS (4)
  - Fatigue [Unknown]
  - Depression [Unknown]
  - Dry mouth [Unknown]
  - Constipation [Unknown]
